FAERS Safety Report 10779032 (Version 1)
Quarter: 2015Q1

REPORT INFORMATION
  Report Type: Spontaneous
  Country: US (occurrence: None)
  Receive Date: 20150205
  Receipt Date: 20150205
  Transmission Date: 20150721
  Serious: No
  Sender: FDA-Public Use
  Company Number: None

PATIENT
  Age: 79 Year
  Sex: Female
  Weight: 61.24 kg

DRUGS (20)
  1. PANTOZOLE [Concomitant]
     Active Substance: PANTOPRAZOLE SODIUM
  2. LEVOTHYROXINE [Concomitant]
     Active Substance: LEVOTHYROXINE
  3. CLONAZEPAM. [Concomitant]
     Active Substance: CLONAZEPAM
  4. TAMOXIFEN CITRATE. [Concomitant]
     Active Substance: TAMOXIFEN CITRATE
  5. LANTANOPROST [Concomitant]
  6. VIT A [Concomitant]
  7. B-2 [Concomitant]
  8. CINNAMON. [Concomitant]
     Active Substance: CINNAMON
  9. VITAMIN D3 [Concomitant]
     Active Substance: CHOLECALCIFEROL
  10. ALENDRONATE [Concomitant]
     Active Substance: ALENDRONATE SODIUM
  11. CALCIUM + D [Concomitant]
     Active Substance: CALCIUM\VITAMIN D
  12. HYDROCHLOROTHIAZIDE. [Concomitant]
     Active Substance: HYDROCHLOROTHIAZIDE
  13. METHENAMINE HIPPUR [Concomitant]
  14. NAMENDA [Concomitant]
     Active Substance: MEMANTINE HYDROCHLORIDE
  15. TIMOLOL MALSOL [Concomitant]
  16. ZINC [Concomitant]
     Active Substance: ZINC\ZINC CHLORIDE
  17. POTASSIUM CL [Concomitant]
     Active Substance: POTASSIUM CHLORIDE
  18. VITAMIN E [Concomitant]
     Active Substance: .ALPHA.-TOCOPHEROL
  19. MAGNESIUM [Concomitant]
     Active Substance: MAGNESIUM
  20. BOTOX [Suspect]
     Active Substance: ONABOTULINUMTOXINA
     Indication: MIGRAINE
     Dates: start: 20140124, end: 20140124

REACTIONS (5)
  - Headache [None]
  - Dizziness [None]
  - Deformity [None]
  - Injection site pruritus [None]
  - Drug ineffective [None]

NARRATIVE: CASE EVENT DATE: 20141124
